FAERS Safety Report 7279247-5 (Version None)
Quarter: 2011Q1

REPORT INFORMATION
  Report Type: 
  Country: None (occurrence: None)
  Receive Date: 20110207
  Receipt Date: 20110202
  Transmission Date: 20110831
  Serious: Yes (Other)
  Sender: FDA-Public Use
  Company Number: JP-PFIZER INC-2011024340

PATIENT
  Age: 54 Year
  Sex: Male

DRUGS (2)
  1. CABASER [Suspect]
     Indication: PARKINSON'S DISEASE
     Dosage: 4 MG, 1X/DAY
  2. ENTACAPONE [Concomitant]
     Dosage: UNK

REACTIONS (1)
  - SUDDEN ONSET OF SLEEP [None]
